FAERS Safety Report 16100237 (Version 1)
Quarter: 2019Q1

REPORT INFORMATION
  Report Type: Spontaneous
  Country: US (occurrence: US)
  Receive Date: 20190321
  Receipt Date: 20190321
  Transmission Date: 20190418
  Serious: No
  Sender: FDA-Public Use
  Company Number: US-DSJP-DSU-2017-145147

PATIENT

DRUGS (1)
  1. TRIBENZOR [Suspect]
     Active Substance: AMLODIPINE BESYLATE\HYDROCHLOROTHIAZIDE\OLMESARTAN MEDOXOMIL
     Indication: HYPERTENSION
     Dosage: 40/5/12.5MG, QD
     Route: 048
     Dates: start: 20140127, end: 20160617

REACTIONS (6)
  - Constipation [Unknown]
  - Occult blood [Unknown]
  - Sprue-like enteropathy [Recovered/Resolved]
  - Large intestine polyp [Recovered/Resolved]
  - Haemorrhoids [Unknown]
  - Diverticulum intestinal [Unknown]

NARRATIVE: CASE EVENT DATE: 201403
